FAERS Safety Report 4967423-3 (Version None)
Quarter: 2006Q2

REPORT INFORMATION
  Report Type: 
  Country: None (occurrence: None)
  Receive Date: 20060410
  Receipt Date: 20060328
  Transmission Date: 20061013
  Serious: Yes (Hospitalization)
  Sender: FDA-Public Use
  Company Number: ES-AMGEN-UK174234

PATIENT
  Age: 67 Year

DRUGS (4)
  1. NEUPOGEN [Suspect]
     Indication: PRE-EXISTING DISEASE
     Route: 065
  2. VELCADE [Suspect]
     Route: 065
     Dates: start: 20050830
  3. SEPTRA [Suspect]
     Route: 048
  4. NEORECORMON [Concomitant]
     Route: 048

REACTIONS (1)
  - NEUROPATHY PERIPHERAL [None]
